FAERS Safety Report 4370905-9 (Version None)
Quarter: 2004Q2

REPORT INFORMATION
  Report Type: 
  Country: None (occurrence: None)
  Receive Date: 20040601
  Receipt Date: 20040514
  Transmission Date: 20050107
  Serious: Yes (Hospitalization)
  Sender: FDA-Public Use
  Company Number: K200400747

PATIENT
  Age: 77 Year
  Sex: Female

DRUGS (4)
  1. FLORINEF [Suspect]
     Indication: HYPOTENSION
     Dosage: 100 MCG, QD, ORAL; 200 MCG, QD, ORAL; 300 MCG, QD, ORAL
     Route: 048
     Dates: start: 20030101, end: 20031101
  2. FLORINEF [Suspect]
     Indication: HYPOTENSION
     Dosage: 100 MCG, QD, ORAL; 200 MCG, QD, ORAL; 300 MCG, QD, ORAL
     Route: 048
     Dates: start: 20031101
  3. MIDODRINE HYDROCHLORIDE (MIDODRINE HYDROCHLORIDE) [Concomitant]
  4. DIGOXIN [Concomitant]

REACTIONS (1)
  - HALLUCINATION [None]
